FAERS Safety Report 6068977-9 (Version None)
Quarter: 2009Q1

REPORT INFORMATION
  Report Type: 
  Country: None (occurrence: None)
  Receive Date: 20090206
  Receipt Date: 20090203
  Transmission Date: 20090719
  Serious: Yes (Other)
  Sender: FDA-Public Use
  Company Number: US-MERCK-0902USA00458

PATIENT
  Age: 60 Year
  Sex: Female

DRUGS (5)
  1. SINGULAIR [Suspect]
     Indication: ASTHMA
     Route: 048
     Dates: start: 20070101, end: 20081101
  2. SINGULAIR [Suspect]
     Indication: HYPERSENSITIVITY
     Route: 048
     Dates: start: 20070101, end: 20081101
  3. ZANTAC [Concomitant]
     Route: 065
  4. CARDURA [Concomitant]
     Route: 065
  5. LEVOXYL [Concomitant]
     Route: 065

REACTIONS (2)
  - MOOD ALTERED [None]
  - SUICIDAL IDEATION [None]
